FAERS Safety Report 5302048-1 (Version None)
Quarter: 2007Q2

REPORT INFORMATION
  Report Type: 
  Country: None (occurrence: None)
  Receive Date: 20070413
  Receipt Date: 20070410
  Transmission Date: 20071010
  Serious: Yes (Life-Threatening, Hospitalization)
  Sender: FDA-Public Use
  Company Number: THQ2007A00283

PATIENT

DRUGS (3)
  1. ACTOS [Suspect]
     Route: 048
  2. ORAL ANTIDIABETICS (ORAL ANTIDIABETICS) [Concomitant]
  3. METFORMIN HCL [Concomitant]

REACTIONS (3)
  - DIALYSIS [None]
  - HYPOGLYCAEMIA [None]
  - RENAL DISORDER [None]
